FAERS Safety Report 22006113 (Version 1)
Quarter: 2023Q1

REPORT INFORMATION
  Report Type: Spontaneous
  Country: US (occurrence: US)
  Receive Date: 20230217
  Receipt Date: 20230217
  Transmission Date: 20230417
  Serious: No
  Sender: FDA-Public Use
  Company Number: US-PFIZER INC-202300070632

PATIENT
  Age: 79 Year
  Sex: Female

DRUGS (2)
  1. IBRANCE [Suspect]
     Active Substance: PALBOCICLIB
     Dosage: 100 MG, CYCLIC (100 MG ONCE DAILY FOR 21 DAYS ON THEN 7 DAYS OFF ORALLY)
     Route: 048
     Dates: start: 20230127
  2. ASPIRIN [Concomitant]
     Active Substance: ASPIRIN
     Dosage: UNK

REACTIONS (3)
  - Weight decreased [Unknown]
  - Taste disorder [Unknown]
  - Dysgeusia [Unknown]
